FAERS Safety Report 21400766 (Version 1)
Quarter: 2022Q4

REPORT INFORMATION
  Report Type: Other
  Country: None (occurrence: IN)
  Receive Date: 20221003
  Receipt Date: 20221003
  Transmission Date: 20230112
  Serious: Yes (Hospitalization, Other)
  Sender: FDA-Public Use
  Company Number: IN-BIOLOGICAL E. LTD-2133395

PATIENT
  Age: 24 Year
  Sex: Female

DRUGS (2)
  1. HEPARIN SODIUM [Suspect]
     Active Substance: HEPARIN SODIUM
     Indication: Anticoagulant therapy
     Route: 042
  2. WARFARIN SODIUM [Concomitant]
     Active Substance: WARFARIN SODIUM
     Route: 065

REACTIONS (4)
  - Cardiac failure acute [Unknown]
  - Exposure during pregnancy [Unknown]
  - Drug ineffective [Unknown]
  - Premature delivery [Unknown]
